FAERS Safety Report 8282958-6 (Version None)
Quarter: 2012Q2

REPORT INFORMATION
  Report Type: 
  Country: None (occurrence: None)
  Receive Date: 20120413
  Receipt Date: 20120330
  Transmission Date: 20120825
  Serious: Yes (Other)
  Sender: FDA-Public Use
  Company Number: JP-ROCHE-1057054

PATIENT
  Sex: Male

DRUGS (5)
  1. RANIBIZUMAB [Suspect]
     Route: 050
     Dates: start: 20100527
  2. RANIBIZUMAB [Suspect]
     Indication: AGE-RELATED MACULAR DEGENERATION
     Route: 050
     Dates: start: 20100218
  3. LEVOFLOXACIN [Concomitant]
     Dates: start: 20100201, end: 20100501
  4. RANIBIZUMAB [Suspect]
     Route: 050
     Dates: start: 20100422
  5. RANIBIZUMAB [Suspect]
     Route: 050
     Dates: start: 20100328

REACTIONS (3)
  - VITREOUS HAEMORRHAGE [None]
  - RETINAL HAEMORRHAGE [None]
  - VISUAL ACUITY REDUCED [None]
